FAERS Safety Report 23896145 (Version 1)
Quarter: 2024Q2

REPORT INFORMATION
  Report Type: Other
  Country: US (occurrence: US)
  Receive Date: 20240524
  Receipt Date: 20240524
  Transmission Date: 20240716
  Serious: Yes (Life-Threatening, Hospitalization, Other)
  Sender: FDA-Public Use
  Company Number: US-Merck Healthcare KGaA-2024026844

PATIENT
  Age: 68 Year
  Sex: Male

DRUGS (1)
  1. METFORMIN HYDROCHLORIDE [Suspect]
     Active Substance: METFORMIN HYDROCHLORIDE
     Indication: Type 2 diabetes mellitus

REACTIONS (13)
  - Hypotension [Recovered/Resolved]
  - Shock [Recovered/Resolved]
  - Lactic acidosis [Recovered/Resolved]
  - Toxicity to various agents [Recovered/Resolved]
  - Hypothermia [Recovered/Resolved]
  - Blood creatinine increased [Recovered/Resolved]
  - Hydroureter [Unknown]
  - Pneumonia aspiration [Unknown]
  - Hydronephrosis [Unknown]
  - Enterococcal bacteraemia [Recovering/Resolving]
  - Calculus bladder [Unknown]
  - Mucosal dryness [Recovered/Resolved]
  - Pallor [Recovered/Resolved]
